FAERS Safety Report 7559995-X (Version None)
Quarter: 2011Q2

REPORT INFORMATION
  Report Type: 
  Country: None (occurrence: None)
  Receive Date: 20110621
  Receipt Date: 20110608
  Transmission Date: 20111010
  Serious: Yes (Other)
  Sender: FDA-Public Use
  Company Number: PHFR2011GB03529

PATIENT
  Sex: Male

DRUGS (2)
  1. LITHIUM CARBONATE [Concomitant]
  2. CLOZAPINE [Suspect]
     Indication: SCHIZOPHRENIA
     Route: 048
     Dates: start: 20100630

REACTIONS (2)
  - THYROID FUNCTION TEST ABNORMAL [None]
  - HYPERTHYROIDISM [None]
